FAERS Safety Report 19196265 (Version 1)
Quarter: 2021Q2

REPORT INFORMATION
  Report Type: Spontaneous
  Country: US (occurrence: US)
  Receive Date: 20210429
  Receipt Date: 20210429
  Transmission Date: 20210717
  Serious: No
  Sender: FDA-Public Use
  Company Number: US-ENDO PHARMACEUTICALS INC-2020-005718

PATIENT
  Sex: Female

DRUGS (2)
  1. FLURAZEPAM HYDROCHLORIDE. [Suspect]
     Active Substance: FLURAZEPAM HYDROCHLORIDE
     Dosage: 30 MG, UNKNOWN
     Route: 065
  2. FLURAZEPAM HYDROCHLORIDE. [Suspect]
     Active Substance: FLURAZEPAM HYDROCHLORIDE
     Indication: PRODUCT USED FOR UNKNOWN INDICATION
     Dosage: 15 MG, UNKNOWN
     Route: 065

REACTIONS (1)
  - Drug ineffective [Unknown]
